FAERS Safety Report 5004761-2 (Version None)
Quarter: 2006Q1

REPORT INFORMATION
  Report Type: 
  Country: None (occurrence: None)
  Receive Date: 20060321
  Receipt Date: 20051209
  Transmission Date: 20060701
  Serious: No
  Sender: FDA-Public Use
  Company Number: YPA20050633

PATIENT
  Age: 82 Year
  Sex: Female

DRUGS (5)
  1. VESICARE [Suspect]
     Indication: URINARY INCONTINENCE
     Dosage: 5 MG, UID/QD, ORAL
     Route: 048
     Dates: start: 20051206
  2. CARTIA/AUS/ [Concomitant]
  3. KLOR-CON [Concomitant]
  4. LISINOPRIL [Concomitant]
  5. MULITIVITAMINS (ERGICALCIFEROL, ASCORBIC ACID, FOLIC ACID, THIAMINE HY [Concomitant]

REACTIONS (4)
  - CONSTIPATION [None]
  - DRUG INEFFECTIVE [None]
  - DRY MOUTH [None]
  - HOT FLUSH [None]
